FAERS Safety Report 8090173-4 (Version None)
Quarter: 2012Q1

REPORT INFORMATION
  Report Type: 
  Country: None (occurrence: None)
  Receive Date: 20120129
  Receipt Date: 20111019
  Transmission Date: 20120608
  Serious: No
  Sender: FDA-Public Use
  Company Number: US-ABBOTT-11P-163-0866618-00

PATIENT
  Sex: Male

DRUGS (12)
  1. NITROSTAT [Concomitant]
     Indication: CHEST PAIN
     Dates: start: 20110801
  2. METHYLPREDNISOLONE ACETATE [Concomitant]
     Indication: RHEUMATOID ARTHRITIS
  3. ALLOPURINOL [Concomitant]
     Indication: GOUT
  4. LIPITOR [Concomitant]
     Indication: BLOOD CHOLESTEROL INCREASED
     Dates: start: 20110801
  5. FOLIC ACID [Concomitant]
     Indication: VITAMIN SUPPLEMENTATION
  6. PLAVIX [Concomitant]
     Indication: CARDIAC DISORDER
     Dates: start: 20110801
  7. CALCIUM WITH VITAMIN D [Concomitant]
     Indication: MINERAL SUPPLEMENTATION
  8. ASPIRIN [Concomitant]
     Indication: CARDIAC DISORDER
     Dates: start: 20110801
  9. HUMIRA [Suspect]
     Indication: RHEUMATOID ARTHRITIS
     Route: 058
     Dates: start: 20110501
  10. SPIRONOLACTONE [Concomitant]
     Indication: FLUID RETENTION
  11. METHOTREXATE [Concomitant]
     Indication: RHEUMATOID ARTHRITIS
  12. METOPOLOL [Concomitant]
     Indication: HYPERTENSION
     Dates: start: 20110801

REACTIONS (2)
  - ACTIVITIES OF DAILY LIVING IMPAIRED [None]
  - ASTHENIA [None]
